FAERS Safety Report 8840659 (Version 1)
Quarter: 2012Q4

REPORT INFORMATION
  Report Type: 
  Country: US (occurrence: US)
  Receive Date: 20121015
  Receipt Date: 20121015
  Transmission Date: 20130627
  Serious: Yes (Other)
  Sender: FDA-Public Use
  Company Number: US-PFIZER INC-2012252515

PATIENT
  Age: 67 Year
  Sex: Male

DRUGS (1)
  1. PREPARATION H SUPPOSITORY [Suspect]
     Indication: HAEMORRHOIDS
     Dosage: UNK

REACTIONS (3)
  - Haemorrhage [Unknown]
  - Poor quality drug administered [Unknown]
  - Product quality issue [Unknown]
